FAERS Safety Report 11262116 (Version 7)
Quarter: 2015Q3

REPORT INFORMATION
  Report Type: Spontaneous
  Country: US (occurrence: US)
  Receive Date: 20150710
  Receipt Date: 20150907
  Transmission Date: 20151125
  Serious: Yes (Hospitalization)
  Sender: FDA-Public Use
  Company Number: US-UNITED THERAPEUTICS-UNT-2015-008191

PATIENT
  Age: 62 Year
  Sex: Female
  Weight: 89.34 kg

DRUGS (4)
  1. REMODULIN [Suspect]
     Active Substance: TREPROSTINIL
     Indication: PULMONARY HYPERTENSION
     Dosage: 0.022 ?G/KG, CONTINUING
     Route: 041
     Dates: start: 20150604
  2. OPSUMIT [Concomitant]
     Active Substance: MACITENTAN
     Indication: PRODUCT USED FOR UNKNOWN INDICATION
  3. REMODULIN [Suspect]
     Active Substance: TREPROSTINIL
     Dosage: 0.035 ?G/KG, CONTINUING
     Route: 041
  4. REVATIO [Concomitant]
     Active Substance: SILDENAFIL CITRATE
     Indication: PRODUCT USED FOR UNKNOWN INDICATION

REACTIONS (9)
  - Device occlusion [Unknown]
  - Pain in extremity [Unknown]
  - Diarrhoea [Unknown]
  - Device dislocation [Unknown]
  - Gastric disorder [Unknown]
  - Blood pressure decreased [Unknown]
  - Clostridium difficile infection [Unknown]
  - Drug dose omission [Unknown]
  - Back pain [Unknown]

NARRATIVE: CASE EVENT DATE: 201507
